FAERS Safety Report 23055380 (Version 1)
Quarter: 2023Q4

REPORT INFORMATION
  Report Type: Spontaneous
  Country: US (occurrence: US)
  Receive Date: 20231011
  Receipt Date: 20231011
  Transmission Date: 20240110
  Serious: Yes (Hospitalization, Other)
  Sender: FDA-Public Use
  Company Number: US-OTSUKA-2023_026066

PATIENT
  Sex: Female

DRUGS (3)
  1. ABILIFY [Suspect]
     Active Substance: ARIPIPRAZOLE
     Indication: Schizoaffective disorder
     Dosage: UNK
     Route: 065
  2. ABILIFY [Suspect]
     Active Substance: ARIPIPRAZOLE
     Indication: Bipolar disorder
  3. ABILIFY [Suspect]
     Active Substance: ARIPIPRAZOLE
     Indication: Schizophrenia

REACTIONS (8)
  - Adverse drug reaction [Unknown]
  - Suicidal ideation [Not Recovered/Not Resolved]
  - Brain fog [Not Recovered/Not Resolved]
  - Psychotic disorder [Unknown]
  - Apathy [Unknown]
  - Depression [Not Recovered/Not Resolved]
  - Weight increased [Unknown]
  - Product use in unapproved indication [Unknown]
